FAERS Safety Report 8008845 (Version 5)
Quarter: 2013Q3

REPORT INFORMATION
  Report Type: Spontaneous
  Country: US (occurrence: US)
  Receive Date: 20110624
  Receipt Date: 20130812
  Transmission Date: 20140515
  Serious: Yes (Other)
  Sender: FDA-Public Use
  Company Number: US-B.I. PHARMACEUTICALS,INC./RIDGEFIELD-2011-BP-14952BP

PATIENT
  Sex: Female

DRUGS (7)
  1. PRADAXA [Suspect]
     Indication: ATRIAL FIBRILLATION
     Dosage: 300 MG
     Route: 048
     Dates: start: 20110510
  2. MULTAQ [Suspect]
     Indication: ATRIAL FIBRILLATION
     Dosage: 800 MG
     Route: 048
     Dates: start: 201103
  3. PHENOBARBITAL (PB) [Concomitant]
     Dosage: 150 MG
  4. DIOVAN [Concomitant]
     Dosage: 60 MG
  5. PROTONIX [Concomitant]
  6. FERROSOL [Concomitant]
  7. FERROUS GLUCONATE [Concomitant]

REACTIONS (6)
  - Conjunctival haemorrhage [Recovered/Resolved]
  - Fall [Recovered/Resolved]
  - Oedema peripheral [Recovered/Resolved]
  - Blood sodium decreased [Recovered/Resolved]
  - Joint swelling [Recovered/Resolved]
  - Gait disturbance [Recovered/Resolved]
